FAERS Safety Report 9977798 (Version 1)
Quarter: 2014Q1

REPORT INFORMATION
  Report Type: Report from Study
  Country: US (occurrence: US)
  Receive Date: 20140306
  Receipt Date: 20140306
  Transmission Date: 20141002
  Serious: No
  Sender: FDA-Public Use
  Company Number: US-ABBVIE-13P-163-1162956-00

PATIENT
  Age: 34 Year
  Sex: Female
  Weight: 97.61 kg

DRUGS (2)
  1. HUMIRA [Suspect]
     Indication: CROHN^S DISEASE
     Route: 058
     Dates: start: 20131011, end: 20131011
  2. HUMIRA [Suspect]
     Route: 058
     Dates: start: 20131028, end: 20131028

REACTIONS (1)
  - Injection site haemorrhage [Recovered/Resolved]
